FAERS Safety Report 13248022 (Version 1)
Quarter: 2017Q1

REPORT INFORMATION
  Report Type: Spontaneous
  Country: HR (occurrence: HR)
  Receive Date: 20170217
  Receipt Date: 20170217
  Transmission Date: 20170428
  Serious: Yes (Other)
  Sender: FDA-Public Use
  Company Number: HR-MYLANLABS-16X-216-1269756-00

PATIENT

DRUGS (7)
  1. ATORIS [Concomitant]
     Active Substance: ATORVASTATIN CALCIUM
     Indication: HYPERLIPIDAEMIA
     Dosage: 20MILLIGRAMQD
     Route: 048
  2. CONTROLOC [Concomitant]
     Active Substance: PANTOPRAZOLE SODIUM
     Indication: PROPHYLAXIS AGAINST GASTROINTESTINAL ULCER
     Dosage: 20MILLIGRAMQD
     Route: 048
  3. MAKCIN SR 500 MG TABLETS [Suspect]
     Active Substance: CLARITHROMYCIN
     Indication: SINUSITIS
     Dosage: 500MILLIGRAMQD
     Route: 048
     Dates: start: 20161020, end: 20161024
  4. DIAZEPAM JADRAN [Concomitant]
     Active Substance: DIAZEPAM
     Indication: MUSCLE RELAXANT THERAPY
     Dosage: 5MILLIGRAMQD
     Route: 048
  5. ALOPURINOL BELUPO [Concomitant]
     Indication: GOUT
     Dosage: 100MILLIGRAMQD
     Route: 048
  6. DORETA [Concomitant]
     Active Substance: ACETAMINOPHEN\TRAMADOL HYDROCHLORIDE
     Indication: PRODUCT USED FOR UNKNOWN INDICATION
     Dosage: 2DOSAGE FORMSBID
     Route: 048
  7. DALNEVA [Concomitant]
     Indication: HYPERTENSION
     Dosage: 1DOSAGE FORMSQD
     Route: 048

REACTIONS (4)
  - Diarrhoea [Recovered/Resolved]
  - Abdominal pain [Recovered/Resolved]
  - Diarrhoea haemorrhagic [Recovered/Resolved]
  - Diarrhoea [Recovered/Resolved]

NARRATIVE: CASE EVENT DATE: 20161021
